FAERS Safety Report 4962496-6 (Version None)
Quarter: 2006Q1

REPORT INFORMATION
  Report Type: 
  Country: None (occurrence: None)
  Receive Date: 20060127
  Receipt Date: 20050307
  Transmission Date: 20060701
  Serious: Yes (Death)
  Sender: FDA-Public Use
  Company Number: 05-03-0367

PATIENT
  Age: 31 Year
  Sex: Female

DRUGS (4)
  1. CLOZAPINE [Suspect]
     Dosage: ORAL
     Route: 048
     Dates: start: 20040801, end: 20041201
  2. CLONAZEPAM (CLONAZEPAM) (TABLETS) [Concomitant]
  3. CLOMIPRAMINE (CLOMIPRAMINE) (CAPSULES) [Concomitant]
  4. SEASONALE (EUGYNON [Concomitant]

REACTIONS (1)
  - UNEVALUABLE EVENT [None]
